FAERS Safety Report 9741831 (Version 2)
Quarter: 2013Q4

REPORT INFORMATION
  Report Type: Report from Study
  Country: CZ (occurrence: CZ)
  Receive Date: 20131210
  Receipt Date: 20131212
  Transmission Date: 20140711
  Serious: Yes (Death)
  Sender: FDA-Public Use
  Company Number: PHHY2013CZ142434

PATIENT
  Sex: Female

DRUGS (1)
  1. IMATINIB [Suspect]
     Dosage: UNK UKN, UNK
     Dates: start: 20031126, end: 20040924

REACTIONS (3)
  - Complications of transplant surgery [Fatal]
  - Pneumonia [Fatal]
  - Multi-organ failure [Fatal]
